FAERS Safety Report 14066905 (Version 1)
Quarter: 2017Q4

REPORT INFORMATION
  Report Type: Spontaneous
  Country: MX (occurrence: MX)
  Receive Date: 20171010
  Receipt Date: 20171010
  Transmission Date: 20180321
  Serious: Yes (Hospitalization, Other)
  Sender: FDA-Public Use
  Company Number: MX-ZYDUS-016944

PATIENT
  Age: 72 Year
  Sex: Female

DRUGS (2)
  1. METFORMIN [Suspect]
     Active Substance: METFORMIN HYDROCHLORIDE
     Indication: TYPE 2 DIABETES MELLITUS
     Route: 065
  2. GLIBENCLAMIDE [Concomitant]
     Active Substance: GLYBURIDE
     Indication: TYPE 2 DIABETES MELLITUS
     Route: 065

REACTIONS (32)
  - Septic shock [Unknown]
  - Renal tubular necrosis [Unknown]
  - Abdominal pain [Unknown]
  - Pyrexia [Unknown]
  - Dehydration [Unknown]
  - Tachycardia [Unknown]
  - Oliguria [Unknown]
  - Hepatic artery thrombosis [Unknown]
  - C-reactive protein decreased [Unknown]
  - Acute kidney injury [Unknown]
  - Multiple organ dysfunction syndrome [Unknown]
  - Confusional state [Unknown]
  - Neutrophilia [Unknown]
  - Blood urea increased [Unknown]
  - Respiratory failure [Unknown]
  - Abdominal tenderness [Unknown]
  - Gastrointestinal infection [Unknown]
  - Somnolence [Unknown]
  - Hypotension [Unknown]
  - Leukocytosis [Unknown]
  - Bandaemia [Unknown]
  - Blood creatinine increased [Unknown]
  - Metabolic acidosis [Unknown]
  - Sepsis [Unknown]
  - Tachypnoea [Unknown]
  - Hyperlactacidaemia [Unknown]
  - Lactic acidosis [Unknown]
  - Diarrhoea [Unknown]
  - Malaise [Unknown]
  - Hyperkalaemia [Unknown]
  - Hepatic infarction [Unknown]
  - Procalcitonin decreased [Unknown]
